FAERS Safety Report 5397042-9 (Version None)
Quarter: 2007Q3

REPORT INFORMATION
  Report Type: 
  Country: None (occurrence: None)
  Receive Date: 20070723
  Receipt Date: 20070705
  Transmission Date: 20080115
  Serious: Yes (Other)
  Sender: FDA-Public Use
  Company Number: 2007-161030-NL

PATIENT
  Age: 24 Year
  Sex: Female

DRUGS (2)
  1. PUREGON [Suspect]
     Indication: INFERTILITY
     Dosage: DF
  2. HUMAN CHORIONIC GONADOTROPHIN [Suspect]
     Indication: INFERTILITY
     Dosage: DF

REACTIONS (2)
  - ABORTION SPONTANEOUS [None]
  - DRUG EXPOSURE DURING PREGNANCY [None]
